FAERS Safety Report 5234100-3 (Version None)
Quarter: 2007Q1

REPORT INFORMATION
  Report Type: 
  Country: None (occurrence: None)
  Receive Date: 20070208
  Receipt Date: 20070207
  Transmission Date: 20070707
  Serious: Yes (Other)
  Sender: FDA-Public Use
  Company Number: IT-SHR-IT-2007-004215

PATIENT
  Age: 22 Year
  Sex: Female

DRUGS (2)
  1. DECADRON [Suspect]
     Dosage: .75 MG, UNK
     Route: 048
     Dates: start: 20060909, end: 20061221
  2. YASMIN [Suspect]
     Dosage: 1 TAB(S), 1X/DAY
     Route: 048
     Dates: start: 20060907, end: 20061221

REACTIONS (3)
  - BLOOD AMYLASE INCREASED [None]
  - BLOOD GLUCOSE INCREASED [None]
  - PANCREATITIS [None]
